FAERS Safety Report 10654907 (Version 1)
Quarter: 2014Q4

REPORT INFORMATION
  Report Type: Spontaneous
  Country: TR (occurrence: None)
  Receive Date: 20141212
  Receipt Date: 20141212
  Transmission Date: 20150529
  Serious: Yes (Hospitalization)
  Sender: FDA-Public Use
  Company Number: FK201406077

PATIENT
  Age: 36 Year
  Sex: Male

DRUGS (3)
  1. CISPLATIN (MANUFACTURER UNKNON) (CISPLATIN) (CISPLATIN) [Suspect]
     Active Substance: CISPLATIN
     Indication: TESTICULAR MALIGNANT TERATOMA
     Dosage: 44MG, 2 CYCLE
  2. ETOPOSIDE. [Concomitant]
     Active Substance: ETOPOSIDE
  3. BLEOMYCIN [Concomitant]
     Active Substance: BLEOMYCIN SULFATE

REACTIONS (2)
  - Coronary artery thrombosis [None]
  - Acute myocardial infarction [None]
